FAERS Safety Report 16529193 (Version 1)
Quarter: 2019Q3

REPORT INFORMATION
  Report Type: Spontaneous
  Country: US (occurrence: US)
  Receive Date: 20190704
  Receipt Date: 20190704
  Transmission Date: 20191004
  Serious: No
  Sender: FDA-Public Use
  Company Number: US-GW PHARMA-201904USGW0877

PATIENT

DRUGS (3)
  1. EPIDIOLEX [Suspect]
     Active Substance: CANNABIDIOL
     Indication: LENNOX-GASTAUT SYNDROME
     Dosage: 190 MILLIGRAM, BID FOR 1 WEEK
     Route: 048
  2. EPIDIOLEX [Suspect]
     Active Substance: CANNABIDIOL
     Indication: EPILEPSY
     Dosage: 380 MILLIGRAM, BID THEREAFTER
     Route: 048
  3. EPIDIOLEX [Suspect]
     Active Substance: CANNABIDIOL
     Dosage: 750 MILLIGRAM, BID
     Route: 048
     Dates: start: 201904

REACTIONS (2)
  - Diarrhoea [Unknown]
  - Steatorrhoea [Unknown]

NARRATIVE: CASE EVENT DATE: 20190329
